FAERS Safety Report 5325804-2 (Version None)
Quarter: 2007Q2

REPORT INFORMATION
  Report Type: 
  Country: None (occurrence: None)
  Receive Date: 20070510
  Receipt Date: 20070430
  Transmission Date: 20071010
  Serious: Yes (Hospitalization, Disabling)
  Sender: FDA-Public Use
  Company Number: GXKR2007GB03903

PATIENT
  Age: 62 Year
  Sex: Male

DRUGS (4)
  1. CIPROFLOXACIN [Suspect]
     Indication: LOWER RESPIRATORY TRACT INFECTION
     Dosage: 250 MG, BID, ORAL
     Route: 048
  2. BECLOMETHASONE (NGX) (BECLOMETHASONE) UNKNOWN [Suspect]
     Indication: ASTHMA
     Dosage: INHALATION
     Route: 055
  3. PREDNISOLONE [Suspect]
     Indication: ASTHMA
     Dosage: 10 MG, QD, ORAL
     Route: 048
  4. SALBUTAMOL (SALBUTAMOL) [Concomitant]

REACTIONS (5)
  - ABASIA [None]
  - PAIN IN EXTREMITY [None]
  - POST PROCEDURAL COMPLICATION [None]
  - TENDON RUPTURE [None]
  - WOUND DECOMPOSITION [None]
